FAERS Safety Report 7478601-6 (Version None)
Quarter: 2011Q2

REPORT INFORMATION
  Report Type: 
  Country: None (occurrence: None)
  Receive Date: 20110511
  Receipt Date: 20110511
  Transmission Date: 20111010
  Serious: No
  Sender: FDA-Public Use
  Company Number: None

PATIENT
  Age: 59 Year
  Sex: Male
  Weight: 101.8325 kg

DRUGS (4)
  1. OMEPRAZOLE [Suspect]
     Indication: BARRETT'S OESOPHAGUS
     Dosage: 20 MG 1 QD - 1 BID
     Dates: start: 20091001
  2. OMEPRAZOLE [Suspect]
     Indication: GASTROOESOPHAGEAL REFLUX DISEASE
     Dosage: 20 MG 1 QD - 1 BID
     Dates: start: 20091001
  3. PREVACID [Suspect]
     Indication: GASTROOESOPHAGEAL REFLUX DISEASE
     Dosage: 30 MG 1 QD - 1 BID
     Dates: start: 20071002, end: 20091001
  4. PREVACID [Suspect]
     Indication: BARRETT'S OESOPHAGUS
     Dosage: 30 MG 1 QD - 1 BID
     Dates: start: 20071002, end: 20091001

REACTIONS (1)
  - DRUG INEFFECTIVE [None]
